FAERS Safety Report 23715786 (Version 2)
Quarter: 2024Q2

REPORT INFORMATION
  Report Type: Spontaneous
  Country: US (occurrence: US)
  Receive Date: 20240408
  Receipt Date: 20240412
  Transmission Date: 20240716
  Serious: No
  Sender: FDA-Public Use
  Company Number: US-JNJFOC-20240401882

PATIENT
  Age: 52 Year
  Sex: Male

DRUGS (3)
  1. TREMFYA [Suspect]
     Active Substance: GUSELKUMAB
     Indication: Psoriatic arthropathy
     Route: 065
  2. MELOXICAM [Concomitant]
     Active Substance: MELOXICAM
  3. FENOFIBRATE [Concomitant]
     Active Substance: FENOFIBRATE
     Dates: start: 20240228

REACTIONS (3)
  - Product dose omission issue [Unknown]
  - Drug delivery system malfunction [Unknown]
  - Syringe issue [Unknown]

NARRATIVE: CASE EVENT DATE: 20240328
